FAERS Safety Report 21560227 (Version 2)
Quarter: 2022Q4

REPORT INFORMATION
  Report Type: Spontaneous
  Country: DE (occurrence: DE)
  Receive Date: 20221107
  Receipt Date: 20221206
  Transmission Date: 20230113
  Serious: Yes (Hospitalization)
  Sender: FDA-Public Use
  Company Number: DE-ADRED-07326-01

PATIENT
  Age: 65 Year
  Sex: Male
  Weight: 67 kg

DRUGS (2)
  1. CAPECITABINE [Suspect]
     Active Substance: CAPECITABINE
     Indication: Product used for unknown indication
     Dosage: UNK
     Route: 065
  2. OXALIPLATIN [Suspect]
     Active Substance: OXALIPLATIN
     Indication: Product used for unknown indication
     Dosage: UNK
     Route: 065

REACTIONS (9)
  - Sensation of foreign body [Unknown]
  - Syncope [Unknown]
  - Sepsis [Unknown]
  - Thrombocytopenia [Unknown]
  - Diarrhoea [Unknown]
  - Loss of consciousness [Unknown]
  - Decreased appetite [Unknown]
  - Leukopenia [Unknown]
  - Product prescribing error [Unknown]

NARRATIVE: CASE EVENT DATE: 20210204
